FAERS Safety Report 7685243-6 (Version None)
Quarter: 2011Q3

REPORT INFORMATION
  Report Type: 
  Country: None (occurrence: None)
  Receive Date: 20110816
  Receipt Date: 20110809
  Transmission Date: 20111222
  Serious: Yes (Life-Threatening, Hospitalization)
  Sender: FDA-Public Use
  Company Number: US-ELI_LILLY_AND_COMPANY-US201108003755

PATIENT
  Sex: Male

DRUGS (4)
  1. HUMAN INSULIN [Suspect]
     Indication: DIABETES MELLITUS
     Dosage: 10 U, QD
  2. METFORMIN HCL [Concomitant]
  3. JANUVIA [Concomitant]
  4. GLIPIZIDE [Concomitant]

REACTIONS (4)
  - RESUSCITATION [None]
  - BLOOD GLUCOSE DECREASED [None]
  - RENAL FAILURE [None]
  - HYPOTENSION [None]
